FAERS Safety Report 20774900 (Version 2)
Quarter: 2022Q2

REPORT INFORMATION
  Report Type: Report from Study
  Country: US (occurrence: US)
  Receive Date: 20220502
  Receipt Date: 20220511
  Transmission Date: 20220721
  Serious: Yes (Other)
  Sender: FDA-Public Use
  Company Number: US-ABBVIE-22K-163-4251573-00

PATIENT
  Age: 59 Year
  Sex: Male

DRUGS (5)
  1. HUMIRA [Suspect]
     Active Substance: ADALIMUMAB
     Indication: Rheumatoid arthritis
     Dosage: CITRATE FREE
     Route: 058
  2. HUMIRA [Suspect]
     Active Substance: ADALIMUMAB
     Route: 058
  3. JANSSEN COVID-19 VACCINE [Concomitant]
     Active Substance: AD26.COV2.S
     Indication: COVID-19 immunisation
     Dosage: FIRST DOSE
     Route: 030
     Dates: start: 20210330, end: 20210330
  4. JANSSEN COVID-19 VACCINE [Concomitant]
     Active Substance: AD26.COV2.S
     Dosage: SECOND DOSE
     Route: 030
     Dates: start: 20211119, end: 20211119
  5. JANSSEN COVID-19 VACCINE [Concomitant]
     Active Substance: AD26.COV2.S
     Dosage: BOOSTER DOSE/THIRD DOSE
     Route: 030

REACTIONS (17)
  - Blood disorder [Unknown]
  - Fall [Unknown]
  - Eye disorder [Unknown]
  - Hyperresponsive to stimuli [Unknown]
  - Concussion [Unknown]
  - Head injury [Unknown]
  - Balance disorder [Recovering/Resolving]
  - Fatigue [Unknown]
  - Neck injury [Unknown]
  - Insomnia [Unknown]
  - Musculoskeletal stiffness [Unknown]
  - Neck pain [Unknown]
  - Pain [Unknown]
  - Nasopharyngitis [Unknown]
  - Nausea [Unknown]
  - Drug ineffective [Unknown]
  - Headache [Unknown]

NARRATIVE: CASE EVENT DATE: 20211101
